FAERS Safety Report 5839191-4 (Version None)
Quarter: 2008Q3

REPORT INFORMATION
  Report Type: 
  Country: None (occurrence: None)
  Receive Date: 20080806
  Receipt Date: 20080725
  Transmission Date: 20090109
  Serious: Yes (Other)
  Sender: FDA-Public Use
  Company Number: 2008SP013440

PATIENT
  Age: 43 Year

DRUGS (2)
  1. REBETOL [Suspect]
     Indication: HEPATITIS C
     Dates: start: 20030708, end: 20040629
  2. PEGASYS [Suspect]
     Indication: HEPATITIS C
     Dates: start: 20030708, end: 20040629

REACTIONS (3)
  - ANTI-THYROID ANTIBODY POSITIVE [None]
  - HYPERTHYROIDISM [None]
  - HYPOTHYROIDISM [None]
